FAERS Safety Report 6838106-X (Version None)
Quarter: 2010Q3

REPORT INFORMATION
  Report Type: 
  Country: None (occurrence: None)
  Receive Date: 20100713
  Receipt Date: 20070531
  Transmission Date: 20110219
  Serious: No
  Sender: FDA-Public Use
  Company Number: US-PFIZER INC-2007045785

PATIENT
  Sex: Male
  Weight: 119.3 kg

DRUGS (7)
  1. CHANTIX [Suspect]
     Indication: SMOKING CESSATION THERAPY
     Dates: start: 20070501
  2. COREG [Concomitant]
  3. LEXAPRO [Concomitant]
  4. HYDROCHLOROTHIAZIDE [Concomitant]
  5. LOTREL [Concomitant]
  6. VYTORIN [Concomitant]
  7. CAMPRAL [Concomitant]

REACTIONS (1)
  - DRUG SCREEN POSITIVE [None]
